FAERS Safety Report 9184247 (Version 2)
Quarter: 2014Q2

REPORT INFORMATION
  Report Type: Spontaneous
  Country: US (occurrence: US)
  Receive Date: 20130322
  Receipt Date: 20140617
  Transmission Date: 20141212
  Serious: Yes (Death, Hospitalization)
  Sender: FDA-Public Use
  Company Number: US-B.I. PHARMACEUTICALS,INC./RIDGEFIELD-2013-BI-07490BP

PATIENT
  Age: 83 Year
  Sex: Male
  Weight: 97.51 kg

DRUGS (8)
  1. PRADAXA [Suspect]
     Indication: ANTICOAGULANT THERAPY
     Dosage: 150 MG
     Route: 048
     Dates: start: 20110302, end: 20110309
  2. PRADAXA [Suspect]
     Indication: ATRIAL FIBRILLATION
  3. DILTIAZEM [Concomitant]
     Dosage: 360 MG
     Route: 048
  4. DIOVAN HCT [Concomitant]
     Dosage: 160 MG
     Route: 048
  5. DIOVAN HCT [Concomitant]
     Dosage: 25 MG
     Route: 048
  6. METOPROLOL TARTRATE [Concomitant]
     Dosage: 200 MG
     Route: 048
  7. PRAVASTATIN [Concomitant]
     Route: 065
  8. AVALIDE [Concomitant]
     Route: 065

REACTIONS (4)
  - Gastrointestinal haemorrhage [Fatal]
  - Hypoxic-ischaemic encephalopathy [Fatal]
  - Respiratory failure [Fatal]
  - Anaemia [Unknown]
